FAERS Safety Report 10793904 (Version 3)
Quarter: 2015Q2

REPORT INFORMATION
  Report Type: Spontaneous
  Country: AT (occurrence: AT)
  Receive Date: 20150213
  Receipt Date: 20150416
  Transmission Date: 20150821
  Serious: Yes (Death, Life-Threatening, Hospitalization, Other)
  Sender: FDA-Public Use
  Company Number: AT-ABBVIE-15P-009-1345842-00

PATIENT
  Age: 81 Year
  Sex: Female

DRUGS (1)
  1. DUODOPA [Suspect]
     Active Substance: CARBIDOPA\LEVODOPA
     Indication: PARKINSON^S DISEASE
     Route: 050

REACTIONS (9)
  - Intestinal ischaemia [Unknown]
  - Gastrointestinal disorder [Fatal]
  - Intestinal infarction [Unknown]
  - Gastrointestinal hypomotility [Fatal]
  - Device issue [Fatal]
  - Acute abdomen [Fatal]
  - Multi-organ failure [Fatal]
  - Large intestine perforation [Unknown]
  - Cardiovascular disorder [Fatal]

NARRATIVE: CASE EVENT DATE: 20150102
